FAERS Safety Report 11547557 (Version 1)
Quarter: 2015Q3

REPORT INFORMATION
  Report Type: Spontaneous
  Country: US (occurrence: US)
  Receive Date: 20150903
  Receipt Date: 20150903
  Transmission Date: 20151125
  Serious: No
  Sender: FDA-Public Use
  Company Number: US-ELI_LILLY_AND_COMPANY-US201103000565

PATIENT
  Age: 43 Year
  Sex: Female

DRUGS (7)
  1. KERLONE [Concomitant]
     Active Substance: BETAXOLOL HYDROCHLORIDE
     Dosage: 10 MG, 2/D
  2. FENTANYL. [Concomitant]
     Active Substance: FENTANYL
     Dosage: 75 MG, OTHER
  3. HUMALOG [Suspect]
     Active Substance: INSULIN LISPRO
     Dosage: 15 U, 3/D
  4. WARFARIN [Concomitant]
     Active Substance: WARFARIN
     Dosage: 7.5 MG, DAILY (1/D)
  5. LEVEMIR [Concomitant]
     Active Substance: INSULIN DETEMIR
  6. HUMALOG [Suspect]
     Active Substance: INSULIN LISPRO
     Indication: DIABETES MELLITUS
     Dosage: 5 U, 3/D
     Dates: start: 201101
  7. OXYCONTIN [Concomitant]
     Active Substance: OXYCODONE HYDROCHLORIDE
     Dosage: 40 MG, 2/D

REACTIONS (5)
  - Blood glucose increased [Not Recovered/Not Resolved]
  - Aphthous ulcer [Unknown]
  - Diabetes mellitus inadequate control [Not Recovered/Not Resolved]
  - Lymphadenopathy [Unknown]
  - Eating disorder [Unknown]
